FAERS Safety Report 6335619-4 (Version None)
Quarter: 2009Q3

REPORT INFORMATION
  Report Type: 
  Country: None (occurrence: None)
  Receive Date: 20090826
  Receipt Date: 20090813
  Transmission Date: 20100115
  Serious: Yes (Life-Threatening, Hospitalization)
  Sender: FDA-Public Use
  Company Number: CLOF-1000659

PATIENT
  Age: 56 Year
  Sex: Male
  Weight: 94 kg

DRUGS (11)
  1. EVOLTRA (CLOFARABINE) SOLUTION FOR INFUSION [Suspect]
     Indication: ACUTE MYELOID LEUKAEMIA
     Dosage: 33 MG, QOD, INTRAVENOUS
     Route: 042
     Dates: start: 20090709, end: 20090717
  2. EVOLTRA (CLOFARABINE) SOLUTION FOR INFUSION [Suspect]
     Indication: MYELODYSPLASTIC SYNDROME
     Dosage: 33 MG, QOD, INTRAVENOUS
     Route: 042
     Dates: start: 20090709, end: 20090717
  3. CYTARABINE [Suspect]
     Indication: ACUTE MYELOID LEUKAEMIA
     Dosage: 220 MG, QD, CUTANEOUS
     Route: 003
     Dates: start: 20090708, end: 20090717
  4. CYTARABINE [Suspect]
     Indication: MYELODYSPLASTIC SYNDROME
     Dosage: 220 MG, QD, CUTANEOUS
     Route: 003
     Dates: start: 20090708, end: 20090717
  5. IDARUBICIN (IDARUBICIN) INTRAVENOUS INFUSION [Suspect]
     Indication: ACUTE MYELOID LEUKAEMIA
     Dosage: 22 MG, QOD, INTRAVENOUS
     Route: 042
     Dates: start: 20090708, end: 20090712
  6. IDARUBICIN (IDARUBICIN) INTRAVENOUS INFUSION [Suspect]
     Indication: MYELODYSPLASTIC SYNDROME
     Dosage: 22 MG, QOD, INTRAVENOUS
     Route: 042
     Dates: start: 20090708, end: 20090712
  7. CEFUROXIME [Concomitant]
  8. GENTAMYCIN-MP (GENTAMICIN SULFATE) [Concomitant]
  9. MESALAMINE [Concomitant]
  10. BUDESONIDE [Concomitant]
  11. PENTASA [Concomitant]

REACTIONS (10)
  - ATRIAL FIBRILLATION [None]
  - BLOOD CULTURE POSITIVE [None]
  - CAECITIS [None]
  - CONTINUOUS HAEMODIAFILTRATION [None]
  - ENTEROCOCCAL INFECTION [None]
  - ILEUS [None]
  - MULTI-ORGAN FAILURE [None]
  - RENAL FAILURE [None]
  - RESPIRATORY FAILURE [None]
  - SEPSIS [None]
